FAERS Safety Report 11349287 (Version 1)
Quarter: 2015Q3

REPORT INFORMATION
  Report Type: Spontaneous
  Country: US (occurrence: None)
  Receive Date: 20150805
  Receipt Date: 20150805
  Transmission Date: 20151125
  Serious: No
  Sender: FDA-Public Use
  Company Number: None

PATIENT
  Sex: Female

DRUGS (1)
  1. HUMIRA [Suspect]
     Active Substance: ADALIMUMAB
     Indication: CROHN^S DISEASE
     Dosage: SC, EVERY 2 WEEKS
     Dates: start: 20150513, end: 20150803

REACTIONS (5)
  - Influenza like illness [None]
  - Alopecia [None]
  - Eczema [None]
  - Fatigue [None]
  - Myalgia [None]
